FAERS Safety Report 13090488 (Version 4)
Quarter: 2018Q1

REPORT INFORMATION
  Report Type: Spontaneous
  Country: US (occurrence: US)
  Receive Date: 20170105
  Receipt Date: 20180206
  Transmission Date: 20180508
  Serious: No
  Sender: FDA-Public Use
  Company Number: US-ACTELION-A-US2016-143643

PATIENT
  Age: 81 Year
  Sex: Female

DRUGS (14)
  1. REMODULIN [Concomitant]
     Active Substance: TREPROSTINIL
  2. REVATIO [Concomitant]
     Active Substance: SILDENAFIL CITRATE
  3. POTASSIUM [Concomitant]
     Active Substance: POTASSIUM
  4. OPSUMIT [Suspect]
     Active Substance: MACITENTAN
     Indication: PULMONARY ARTERIAL HYPERTENSION
     Dosage: 10 MG, QD
     Route: 048
     Dates: start: 20131205
  5. ORENITRAM [Concomitant]
     Active Substance: TREPROSTINIL
     Dosage: 325 MG, TID
  6. DIGOXIN. [Concomitant]
     Active Substance: DIGOXIN
  7. LASIX [Concomitant]
     Active Substance: FUROSEMIDE
  8. PAZEO [Concomitant]
     Active Substance: OLOPATADINE HYDROCHLORIDE
  9. OMEPRAZOLE. [Concomitant]
     Active Substance: OMEPRAZOLE
  10. HUMULIN NOS [Concomitant]
     Active Substance: INSULIN HUMAN
  11. DORZOLAMIDE HCL [Concomitant]
     Active Substance: DORZOLAMIDE HYDROCHLORIDE
  12. PRAVASTATIN SODIUM. [Concomitant]
     Active Substance: PRAVASTATIN SODIUM
  13. ORENITRAM [Concomitant]
     Active Substance: TREPROSTINIL
     Dosage: 6 MG, TID
     Dates: start: 20161129
  14. TRAMADOL. [Concomitant]
     Active Substance: TRAMADOL

REACTIONS (4)
  - Arthralgia [Unknown]
  - Headache [Unknown]
  - Diarrhoea [Unknown]
  - Vasoconstriction [Not Recovered/Not Resolved]

NARRATIVE: CASE EVENT DATE: 20160927
